FAERS Safety Report 13358953 (Version 1)
Quarter: 2017Q1

REPORT INFORMATION
  Report Type: Spontaneous
  Country: US (occurrence: US)
  Receive Date: 20170322
  Receipt Date: 20170322
  Transmission Date: 20170429
  Serious: Yes (Other)
  Sender: FDA-Public Use
  Company Number: US-ASTELLAS-2017US010259

PATIENT
  Age: 70 Year
  Sex: Male

DRUGS (2)
  1. XTANDI [Suspect]
     Active Substance: ENZALUTAMIDE
     Indication: PRODUCT USED FOR UNKNOWN INDICATION
     Route: 048
  2. XTANDI [Suspect]
     Active Substance: ENZALUTAMIDE
     Route: 065

REACTIONS (12)
  - Headache [Unknown]
  - Heart rate increased [Unknown]
  - Abdominal pain upper [Unknown]
  - Pollakiuria [Not Recovered/Not Resolved]
  - Dehydration [Unknown]
  - Palpitations [Unknown]
  - Nausea [Unknown]
  - Diarrhoea [Unknown]
  - Chest discomfort [Unknown]
  - Paraesthesia [Unknown]
  - Decreased appetite [Unknown]
  - Dyspnoea [Unknown]

NARRATIVE: CASE EVENT DATE: 20170310
